FAERS Safety Report 7938348-6 (Version None)
Quarter: 2011Q4

REPORT INFORMATION
  Report Type: 
  Country: None (occurrence: None)
  Receive Date: 20111123
  Receipt Date: 20111116
  Transmission Date: 20120403
  Serious: Yes (Disabling, Other)
  Sender: FDA-Public Use
  Company Number: US-BAXTER-2011BH031577

PATIENT
  Age: 9 Year
  Sex: Male
  Weight: 24 kg

DRUGS (24)
  1. GAMMAGARD LIQUID [Suspect]
     Indication: IMMUNODEFICIENCY COMMON VARIABLE
     Route: 058
     Dates: start: 20110825, end: 20110825
  2. ACETYLCARNITINE [Concomitant]
     Indication: UNEVALUABLE EVENT
     Route: 048
  3. GAMMAGARD LIQUID [Suspect]
     Route: 058
     Dates: start: 20110908, end: 20110908
  4. CALCIUM WITH VITAMIN D [Concomitant]
     Indication: UNEVALUABLE EVENT
     Route: 048
  5. GAMMAGARD LIQUID [Suspect]
     Route: 058
     Dates: start: 20110901, end: 20110901
  6. GAMMAGARD LIQUID [Suspect]
     Route: 058
     Dates: start: 20110908, end: 20110908
  7. ASTELIN [Concomitant]
     Indication: PRODUCT USED FOR UNKNOWN INDICATION
     Route: 045
  8. VITAMIN D [Concomitant]
     Indication: UNEVALUABLE EVENT
     Route: 048
  9. VITAMIN B6 [Concomitant]
     Indication: UNEVALUABLE EVENT
     Route: 048
  10. GAMMAGARD LIQUID [Suspect]
     Route: 058
     Dates: start: 20110915, end: 20110916
  11. MULTI-VITAMINS [Concomitant]
     Indication: UNEVALUABLE EVENT
     Route: 048
  12. PREVACID [Concomitant]
     Indication: PRODUCT USED FOR UNKNOWN INDICATION
     Route: 048
  13. FOLIC ACID [Concomitant]
     Indication: UNEVALUABLE EVENT
     Route: 048
  14. MAGNESIUM CITRATE [Concomitant]
     Indication: CONSTIPATION
     Route: 048
  15. GAMMAGARD LIQUID [Suspect]
     Indication: HYPOGAMMAGLOBULINAEMIA
     Route: 058
     Dates: start: 20110825, end: 20110825
  16. GAMMAGARD LIQUID [Suspect]
     Route: 058
     Dates: start: 20110901, end: 20110901
  17. GAMMAGARD LIQUID [Suspect]
     Route: 058
     Dates: start: 20110915, end: 20110916
  18. ADVAIR DISKUS 100/50 [Concomitant]
     Indication: PRODUCT USED FOR UNKNOWN INDICATION
     Route: 055
  19. MELATONIN [Concomitant]
     Indication: PRODUCT USED FOR UNKNOWN INDICATION
     Route: 048
  20. CLONIDINE [Concomitant]
     Indication: PRODUCT USED FOR UNKNOWN INDICATION
     Route: 048
  21. SENOKOT [Concomitant]
     Indication: CONSTIPATION
     Route: 048
  22. SUMATRIPTAN [Concomitant]
     Indication: PREMEDICATION
     Route: 045
  23. MIRALAX [Concomitant]
     Indication: CONSTIPATION
     Route: 048
  24. NAPROXEN [Concomitant]
     Indication: PREMEDICATION
     Route: 048

REACTIONS (10)
  - RESTLESSNESS [None]
  - DECREASED APPETITE [None]
  - PYREXIA [None]
  - SCREAMING [None]
  - MIGRAINE [None]
  - MUSCULOSKELETAL STIFFNESS [None]
  - HEADACHE [None]
  - WEIGHT DECREASED [None]
  - NAUSEA [None]
  - ABDOMINAL PAIN [None]
